FAERS Safety Report 21522102 (Version 1)
Quarter: 2022Q4

REPORT INFORMATION
  Report Type: Report from Study
  Country: GR (occurrence: GR)
  Receive Date: 20221028
  Receipt Date: 20221028
  Transmission Date: 20230113
  Serious: Yes (Death, Hospitalization, Other)
  Sender: FDA-Public Use
  Company Number: GR-TAKEDA-2022TUS079216

PATIENT
  Age: 77 Year
  Sex: Male

DRUGS (1)
  1. HUMAN IMMUNOGLOBULIN G\HYALURONIDASE RECOMBINANT HUMAN [Suspect]
     Active Substance: HUMAN IMMUNOGLOBULIN G\HYALURONIDASE RECOMBINANT HUMAN
     Indication: Immunodeficiency
     Dosage: UNK
     Route: 058
     Dates: start: 20211102

REACTIONS (2)
  - Septic shock [Fatal]
  - COVID-19 [Fatal]

NARRATIVE: CASE EVENT DATE: 20220410
